FAERS Safety Report 6161366-8 (Version None)
Quarter: 2009Q2

REPORT INFORMATION
  Report Type: 
  Country: None (occurrence: None)
  Receive Date: 20090421
  Receipt Date: 20070509
  Transmission Date: 20091009
  Serious: Yes (Hospitalization, Other)
  Sender: FDA-Public Use
  Company Number: US-ASTRAZENECA-2006UW10991

PATIENT
  Age: 16681 Day
  Sex: Female
  Weight: 77.1 kg

DRUGS (51)
  1. SEROQUEL [Suspect]
     Indication: ANXIETY
     Route: 048
     Dates: start: 20020101, end: 20050101
  2. SEROQUEL [Suspect]
     Indication: DEPRESSION
     Route: 048
     Dates: start: 20020101, end: 20050101
  3. SEROQUEL [Suspect]
     Route: 048
     Dates: start: 20020101, end: 20050101
  4. SEROQUEL [Suspect]
     Route: 048
     Dates: start: 20020101, end: 20050101
  5. SEROQUEL [Suspect]
     Dosage: 25 MG TO 400 MG
     Route: 048
  6. SEROQUEL [Suspect]
     Dosage: 25 MG TO 400 MG
     Route: 048
  7. ZYPREXA [Suspect]
  8. THORAZINE [Concomitant]
     Dates: start: 19700101, end: 19710101
  9. ATIVAN [Concomitant]
  10. REMERON [Concomitant]
  11. KLONOPIN [Concomitant]
  12. DIABETA [Concomitant]
  13. TYLENOL [Concomitant]
  14. ARTHROTEC [Concomitant]
  15. NAPROSYN [Concomitant]
  16. PERCOCET [Concomitant]
  17. VICODIN [Concomitant]
  18. METHOCARBAMOL [Concomitant]
  19. FENTANYL [Concomitant]
  20. ZOLOFT [Concomitant]
  21. FERROUS SULFATE TAB [Concomitant]
  22. METHADONE HCL [Concomitant]
  23. PROPOFOL [Concomitant]
  24. ZANTAC [Concomitant]
  25. VALIUM [Concomitant]
  26. SOMA [Concomitant]
  27. DEPAKOTE [Concomitant]
  28. TIGAN [Concomitant]
  29. PAROXETINE HYDROCHLORIDE [Concomitant]
  30. LIPITOR [Concomitant]
  31. COLACE [Concomitant]
  32. BISACODYL [Concomitant]
  33. LISINOPRIL [Concomitant]
  34. BACLOFEN [Concomitant]
  35. CYMBALTA [Concomitant]
  36. LIDODERM [Concomitant]
  37. CLONIDINE HCL [Concomitant]
  38. TRAZODONE HYDROCHLORIDE [Concomitant]
  39. LACTULOSE [Concomitant]
  40. FAMOTIDINE [Concomitant]
  41. NICODERM [Concomitant]
  42. ANUCORT-HC [Concomitant]
  43. GLYCOLAX [Concomitant]
  44. ROCEPHIN [Concomitant]
  45. PHENERGAN [Concomitant]
  46. AMBIEN [Concomitant]
  47. GLUCOPHAGE [Concomitant]
  48. NEURONTIN [Concomitant]
  49. REGLAN [Concomitant]
  50. MIRALAX [Concomitant]
  51. VISTARIL [Concomitant]

REACTIONS (33)
  - ABDOMINAL PAIN [None]
  - ANAEMIA [None]
  - ANEURYSM [None]
  - ANXIETY [None]
  - ARTHRALGIA [None]
  - BACK INJURY [None]
  - BACK PAIN [None]
  - BRAIN STEM STROKE [None]
  - CELLULITIS [None]
  - CERVICAL MYELOPATHY [None]
  - CHEST PAIN [None]
  - CONSTIPATION [None]
  - CONTUSION [None]
  - DIABETIC ULCER [None]
  - DIVERTICULITIS [None]
  - DRUG ABUSE [None]
  - DYSPNOEA [None]
  - FALL [None]
  - HEADACHE [None]
  - HEPATITIS C [None]
  - INTERVERTEBRAL DISC DISORDER [None]
  - INTRA-CEREBRAL ANEURYSM OPERATION [None]
  - NAIL DISORDER [None]
  - NECK PAIN [None]
  - ONYCHOMYCOSIS [None]
  - OSTEOARTHRITIS [None]
  - PAIN [None]
  - PANIC ATTACK [None]
  - PEAU D'ORANGE [None]
  - POLYARTHRITIS [None]
  - SMALL INTESTINAL OBSTRUCTION [None]
  - SUBCUTANEOUS ABSCESS [None]
  - TYPE 2 DIABETES MELLITUS [None]
